FAERS Safety Report 7203321-2 (Version None)
Quarter: 2010Q4

REPORT INFORMATION
  Report Type: 
  Country: None (occurrence: None)
  Receive Date: 20101230
  Receipt Date: 20101220
  Transmission Date: 20110411
  Serious: No
  Sender: FDA-Public Use
  Company Number: US-BIOGENIDEC-2010BI044501

PATIENT
  Sex: Female

DRUGS (3)
  1. AVONEX [Suspect]
     Indication: MULTIPLE SCLEROSIS
     Route: 030
     Dates: start: 20101210
  2. CYCLOBENZAPRINE [Concomitant]
     Indication: MUSCLE SPASMS
  3. IBUPROFEN [Concomitant]
     Indication: MUSCLE SPASMS

REACTIONS (2)
  - JOINT RANGE OF MOTION DECREASED [None]
  - NECK PAIN [None]
